FAERS Safety Report 19093123 (Version 2)
Quarter: 2021Q2

REPORT INFORMATION
  Report Type: Spontaneous
  Country: TR (occurrence: TR)
  Receive Date: 20210405
  Receipt Date: 20210430
  Transmission Date: 20210717
  Serious: Yes (Other)
  Sender: FDA-Public Use
  Company Number: TR-SA-2021SA107224

PATIENT
  Age: 66 Year
  Sex: Male

DRUGS (4)
  1. AMLODIPINE [Suspect]
     Active Substance: AMLODIPINE BESYLATE
     Indication: HYPERTENSION
  2. ATORVASTATIN [Suspect]
     Active Substance: ATORVASTATIN
     Indication: HYPERLIPIDAEMIA
  3. CILAZAPRIL [Suspect]
     Active Substance: CILAZAPRIL ANHYDROUS
     Indication: CORONARY ARTERY DISEASE
  4. CLOPIDOGREL BISULFATE. [Suspect]
     Active Substance: CLOPIDOGREL BISULFATE
     Indication: CORONARY ARTERY DISEASE

REACTIONS (12)
  - Macule [Unknown]
  - Pityriasis rosea [Unknown]
  - Epidermal necrosis [Unknown]
  - Perivascular dermatitis [Unknown]
  - Skin plaque [Unknown]
  - Acanthosis [Unknown]
  - Parakeratosis [Unknown]
  - Excessive granulation tissue [Unknown]
  - Skin hyperpigmentation [Unknown]
  - Rash [Unknown]
  - Erythema [Unknown]
  - Fixed eruption [Unknown]
